FAERS Safety Report 7111467-2 (Version None)
Quarter: 2010Q4

REPORT INFORMATION
  Report Type: 
  Country: None (occurrence: None)
  Receive Date: 20101118
  Receipt Date: 20100512
  Transmission Date: 20110411
  Serious: Yes (Death, Other)
  Sender: FDA-Public Use
  Company Number: US-PFIZER INC-2010060616

PATIENT
  Age: 70 Year
  Sex: Female

DRUGS (2)
  1. ZYVOX [Suspect]
     Indication: ENTEROCOCCAL INFECTION
     Dosage: UNK
     Dates: start: 20100501
  2. LEXAPRO [Concomitant]
     Dosage: UNK

REACTIONS (2)
  - PYREXIA [None]
  - SEROTONIN SYNDROME [None]
